FAERS Safety Report 5161173-9 (Version None)
Quarter: 2006Q4

REPORT INFORMATION
  Report Type: 
  Country: None (occurrence: None)
  Receive Date: 20061130
  Receipt Date: 20060531
  Transmission Date: 20070319
  Serious: No
  Sender: FDA-Public Use
  Company Number: US-BRISTOL-MYERS SQUIBB COMPANY-13400437

PATIENT
  Age: 46 Year
  Sex: Male

DRUGS (3)
  1. ERBITUX [Suspect]
     Indication: NEOPLASM MALIGNANT
     Route: 042
     Dates: start: 20060103
  2. ETOPOSIDE [Concomitant]
  3. RADIATION THERAPY [Concomitant]

REACTIONS (1)
  - SUNBURN [None]
